FAERS Safety Report 21017724 (Version 2)
Quarter: 2022Q3

REPORT INFORMATION
  Report Type: Spontaneous
  Country: US (occurrence: US)
  Receive Date: 20220628
  Receipt Date: 20220715
  Transmission Date: 20221027
  Serious: No
  Sender: FDA-Public Use
  Company Number: US-MYLANLABS-2022M1045637

PATIENT
  Age: 69 Year
  Sex: Female

DRUGS (3)
  1. EMSAM [Suspect]
     Active Substance: SELEGILINE
     Indication: Depression
     Dosage: 6 MILLIGRAM, QD (ONCE A DAILY)
     Route: 062
     Dates: start: 20220606
  2. CHOLESTYRAMINE [Concomitant]
     Active Substance: CHOLESTYRAMINE
     Dosage: UNK UNK, QD (ONCE A DAY )
     Route: 065
  3. XIFAXAN [Concomitant]
     Active Substance: RIFAXIMIN
     Dosage: UNK (CERTAIN DAYS 3 X DAY)
     Route: 048

REACTIONS (4)
  - Product adhesion issue [Unknown]
  - Wrong technique in product usage process [Unknown]
  - Application site erythema [Not Recovered/Not Resolved]
  - Application site reaction [Not Recovered/Not Resolved]

NARRATIVE: CASE EVENT DATE: 20220622
